FAERS Safety Report 5473464-2 (Version None)
Quarter: 2007Q4

REPORT INFORMATION
  Report Type: 
  Country: None (occurrence: None)
  Receive Date: 20071001
  Receipt Date: 20070925
  Transmission Date: 20080405
  Serious: Yes (Other)
  Sender: FDA-Public Use
  Company Number: US-SHR-US-2007-018948

PATIENT
  Age: 59 Year
  Sex: Male

DRUGS (2)
  1. BETASERON [Suspect]
     Route: 058
  2. REBIF [Suspect]

REACTIONS (3)
  - ACTIVITIES OF DAILY LIVING IMPAIRED [None]
  - ASTHENIA [None]
  - MOBILITY DECREASED [None]
